FAERS Safety Report 9105507 (Version 1)
Quarter: 2013Q1

REPORT INFORMATION
  Report Type: Spontaneous
  Country: FR (occurrence: FR)
  Receive Date: 20130220
  Receipt Date: 20130220
  Transmission Date: 20140127
  Serious: Yes (Hospitalization)
  Sender: FDA-Public Use
  Company Number: FR-SANOFI-AVENTIS-2013SA013577

PATIENT
  Age: 66 Year
  Sex: Female

DRUGS (9)
  1. PLAQUENIL [Suspect]
     Indication: SCLERODERMA
     Route: 048
     Dates: start: 201211, end: 20121228
  2. KARDEGIC [Concomitant]
  3. CORTANCYL [Concomitant]
  4. OLMETEC [Concomitant]
  5. MOPRAL [Concomitant]
  6. UVEDOSE [Concomitant]
  7. ALENDRONIC ACID [Concomitant]
  8. FOSAMAX [Concomitant]
  9. PIASCLEDINE [Concomitant]

REACTIONS (2)
  - Rash maculo-papular [Recovering/Resolving]
  - Enanthema [Recovering/Resolving]
